FAERS Safety Report 4570428-8 (Version None)
Quarter: 2005Q1

REPORT INFORMATION
  Report Type: 
  Country: None (occurrence: None)
  Receive Date: 20050204
  Receipt Date: 20050120
  Transmission Date: 20050727
  Serious: Yes (Hospitalization, Other)
  Sender: FDA-Public Use
  Company Number: US-MERCK-0502USA00103

PATIENT
  Age: 7 Year

DRUGS (4)
  1. ELSPAR [Suspect]
     Indication: ACUTE LYMPHOCYTIC LEUKAEMIA
     Route: 030
  2. VINCRISTINE SULFATE [Concomitant]
     Route: 065
  3. PREDNISONE [Concomitant]
     Route: 065
  4. METHOTREXATE [Concomitant]
     Route: 042

REACTIONS (6)
  - ANTITHROMBIN III DEFICIENCY [None]
  - CEREBRAL ARTERY THROMBOSIS [None]
  - CEREBRAL VENOUS THROMBOSIS [None]
  - ENCEPHALOPATHY [None]
  - HYPERCOAGULATION [None]
  - THROMBOSIS [None]
